FAERS Safety Report 9709066 (Version 2)
Quarter: 2013Q4

REPORT INFORMATION
  Report Type: Spontaneous
  Country: IT (occurrence: IT)
  Receive Date: 20131125
  Receipt Date: 20131125
  Transmission Date: 20140711
  Serious: Yes (Other)
  Sender: FDA-Public Use
  Company Number: PHHY2013IT115660

PATIENT
  Age: 74 Year
  Sex: Female

DRUGS (2)
  1. DONEPEZIL [Suspect]
     Indication: COGNITIVE DISORDER
     Dosage: 5 MG, QD
     Route: 048
     Dates: start: 20130801, end: 20130803
  2. SERTRALINE [Suspect]
     Indication: ANXIETY
     Dosage: 50 MG, QD
     Route: 048
     Dates: start: 20130801, end: 20130803

REACTIONS (1)
  - Delusional disorder, persecutory type [Recovering/Resolving]
